FAERS Safety Report 5684991-7 (Version None)
Quarter: 2008Q1

REPORT INFORMATION
  Report Type: 
  Country: None (occurrence: None)
  Receive Date: 20080328
  Receipt Date: 20080318
  Transmission Date: 20080703
  Serious: Yes (Hospitalization)
  Sender: FDA-Public Use
  Company Number: US-WYE-H01416107

PATIENT
  Sex: Male
  Weight: 41.5 kg

DRUGS (2)
  1. TEMSIROLIMUS [Suspect]
     Indication: NEUROBLASTOMA
     Route: 042
     Dates: start: 20071012
  2. LUGOL'S [Concomitant]
     Indication: PROPHYLAXIS
     Route: 048
     Dates: start: 20071119, end: 20071124

REACTIONS (7)
  - ASPARTATE AMINOTRANSFERASE INCREASED [None]
  - BLOOD ALKALINE PHOSPHATASE INCREASED [None]
  - HAEMOGLOBIN DECREASED [None]
  - HEADACHE [None]
  - HYPOTENSION [None]
  - PLATELET COUNT DECREASED [None]
  - SEPSIS SYNDROME [None]
